FAERS Safety Report 25085186 (Version 1)
Quarter: 2025Q1

REPORT INFORMATION
  Report Type: Spontaneous
  Country: US (occurrence: None)
  Receive Date: 20250314
  Receipt Date: 20250314
  Transmission Date: 20250409
  Serious: No
  Sender: FDA-CTU
  Company Number: None

PATIENT
  Sex: Female

DRUGS (1)
  1. JAYPIRCA [Suspect]
     Active Substance: PIRTOBRUTINIB
     Indication: B-cell lymphoma
     Dosage: 200 MG DAILY ORAL
     Route: 048

REACTIONS (6)
  - Skin discolouration [None]
  - Skin haemorrhage [None]
  - Heart rate increased [None]
  - Fatigue [None]
  - Myalgia [None]
  - Pain [None]
